FAERS Safety Report 8355213-3 (Version None)
Quarter: 2012Q2

REPORT INFORMATION
  Report Type: 
  Country: None (occurrence: None)
  Receive Date: 20120511
  Receipt Date: 20120430
  Transmission Date: 20120825
  Serious: Yes (Hospitalization, Other)
  Sender: FDA-Public Use
  Company Number: US-ELI_LILLY_AND_COMPANY-US201202007934

PATIENT
  Sex: Female
  Weight: 49 kg

DRUGS (8)
  1. LORAZEPAM [Concomitant]
  2. TRAMADOL HYDROCHLORIDE [Concomitant]
  3. LISINOPRIL [Concomitant]
  4. TYLENOL                                 /SCH/ [Concomitant]
  5. CALCIUM W/VITAMIN D NOS [Concomitant]
  6. FERROUS SULFATE TAB [Concomitant]
  7. COREG [Concomitant]
  8. FORTEO [Suspect]
     Indication: OSTEOPOROSIS
     Route: 065

REACTIONS (3)
  - HAEMOGLOBIN DECREASED [None]
  - HYDRONEPHROSIS [None]
  - HAEMATURIA [None]
